FAERS Safety Report 18869992 (Version 2)
Quarter: 2021Q1

REPORT INFORMATION
  Report Type: Spontaneous
  Country: US (occurrence: US)
  Receive Date: 20210209
  Receipt Date: 20210312
  Transmission Date: 20210420
  Serious: Yes (Hospitalization, Other)
  Sender: FDA-Public Use
  Company Number: US-AMGEN-USASP2021018104

PATIENT
  Age: 25 Year
  Sex: Male

DRUGS (1)
  1. XGEVA [Suspect]
     Active Substance: DENOSUMAB
     Indication: ALBRIGHT^S DISEASE
     Dosage: 120 MILLIGRAM, EVERY 1.5 MONTHS
     Route: 058

REACTIONS (9)
  - Rebound effect [Unknown]
  - Hypercalcaemia [Recovered/Resolved]
  - Nausea [Unknown]
  - Blood 25-hydroxycholecalciferol decreased [Unknown]
  - Vomiting [Recovered/Resolved]
  - Migraine [Unknown]
  - Off label use [Unknown]
  - Blood parathyroid hormone decreased [Unknown]
  - Blood 1,25-dihydroxycholecalciferol decreased [Unknown]

NARRATIVE: CASE EVENT DATE: 20191124
